FAERS Safety Report 8425575 (Version 2)
Quarter: 2012Q4

REPORT INFORMATION
  Report Type: 
  Country: CA (occurrence: CA)
  Receive Date: 20120224
  Receipt Date: 20121205
  Transmission Date: 20130627
  Serious: Yes (Hospitalization, Other)
  Sender: FDA-Public Use
  Company Number: PHHY2012CA012619

PATIENT
  Age: 69 None
  Sex: Male

DRUGS (1)
  1. SANDOSTATIN LAR [Suspect]
     Indication: CARCINOID TUMOUR
     Dosage: 40 mg, every 3 weeks
     Route: 030
     Dates: start: 20021101

REACTIONS (9)
  - Coma [Unknown]
  - Blood potassium abnormal [Unknown]
  - Blood sodium abnormal [Unknown]
  - Accident [Unknown]
  - Multiple injuries [Unknown]
  - Femoral artery occlusion [Unknown]
  - Ulcer [Unknown]
  - Asthenia [Unknown]
  - Diarrhoea [Unknown]
